FAERS Safety Report 8519069-8 (Version None)
Quarter: 2012Q3

REPORT INFORMATION
  Report Type: 
  Country: None (occurrence: None)
  Receive Date: 20120718
  Receipt Date: 20120711
  Transmission Date: 20120928
  Serious: Yes (Hospitalization, Other)
  Sender: FDA-Public Use
  Company Number: FR-PFIZER INC-2012165943

PATIENT
  Age: 73 Year
  Sex: Male

DRUGS (14)
  1. PREVISCAN [Concomitant]
     Dosage: 20 MG SCORED TABLET, UNK
  2. VITAMIN D [Concomitant]
     Dosage: UNK
  3. BISOPROLOL FUMARATE [Suspect]
     Dosage: UNK
     Dates: end: 20110101
  4. ATORVASTATIN [Suspect]
     Dosage: UNK
     Route: 048
     Dates: end: 20111001
  5. ZOLPIDEM [Concomitant]
     Dosage: UNK
  6. ASPIRIN [Suspect]
     Dosage: UNK
     Route: 048
     Dates: start: 20110401, end: 20111001
  7. ALLOPURINOL [Suspect]
     Dosage: UNK
     Route: 048
     Dates: start: 20110101, end: 20111001
  8. RAMIPRIL [Concomitant]
     Dosage: UNK
  9. LASIX [Concomitant]
     Dosage: UNK
  10. DIGOXIN [Concomitant]
     Dosage: 0.125 MG, UNK
  11. ATARAX [Concomitant]
     Dosage: UNK
  12. FERROUS SULFATE TAB [Concomitant]
     Dosage: UNK
  13. TRAMADOL HYDROCHLORIDE [Suspect]
     Dosage: UNK
     Dates: end: 20110101
  14. FOLIC ACID [Concomitant]
     Dosage: UNK

REACTIONS (2)
  - CARDIAC FAILURE [None]
  - TOXIC SKIN ERUPTION [None]
